FAERS Safety Report 23172532 (Version 1)
Quarter: 2023Q4

REPORT INFORMATION
  Report Type: Spontaneous
  Country: US (occurrence: US)
  Receive Date: 20231110
  Receipt Date: 20231110
  Transmission Date: 20240110
  Serious: Yes (Other)
  Sender: FDA-Public Use
  Company Number: US-ELI_LILLY_AND_COMPANY-US202311000323

PATIENT
  Sex: Male

DRUGS (2)
  1. MOUNJARO [Interacting]
     Active Substance: TIRZEPATIDE
     Indication: Product used for unknown indication
     Dosage: UNK UNK, UNKNOWN
     Route: 065
  2. DUPIXENT [Interacting]
     Active Substance: DUPILUMAB
     Indication: Dermatitis atopic
     Dosage: 600 MG, ONCE
     Route: 058

REACTIONS (8)
  - Pulmonary congestion [Unknown]
  - Skin burning sensation [Unknown]
  - Rash [Unknown]
  - Dyspnoea [Unknown]
  - Anxiety [Unknown]
  - Blood pressure increased [Unknown]
  - Red blood cell count increased [Unknown]
  - Drug interaction [Not Recovered/Not Resolved]

NARRATIVE: CASE EVENT DATE: 20220101
